FAERS Safety Report 9498996 (Version 2)
Quarter: 2013Q4

REPORT INFORMATION
  Report Type: Report from Study
  Country: JP (occurrence: JP)
  Receive Date: 20130904
  Receipt Date: 20131028
  Transmission Date: 20140711
  Serious: Yes (Death, Other)
  Sender: FDA-Public Use
  Company Number: JP-GILEAD-2013-0082202

PATIENT
  Age: 32 Year
  Sex: Female
  Weight: 49 kg

DRUGS (16)
  1. AMBRISENTAN [Suspect]
     Indication: PULMONARY ARTERIAL HYPERTENSION
     Dosage: 2.5MG TWICE PER DAY
     Route: 048
     Dates: start: 20120110, end: 20120719
  2. FLOLAN [Concomitant]
     Indication: PULMONARY ARTERIAL HYPERTENSION
     Route: 042
     Dates: end: 20120723
  3. ADCIRCA [Concomitant]
     Indication: PULMONARY ARTERIAL HYPERTENSION
     Route: 048
     Dates: end: 20120219
  4. ADCIRCA [Concomitant]
     Route: 048
     Dates: start: 20120110, end: 20120219
  5. PIMOBENDAN [Concomitant]
     Dosage: UNK
     Dates: end: 20130719
  6. PIMOBENDAN [Concomitant]
     Route: 048
     Dates: end: 20120719
  7. ASPENON [Concomitant]
     Route: 048
     Dates: end: 20120719
  8. ALDACTONE A [Concomitant]
     Route: 048
     Dates: end: 20120719
  9. TAKEPRON [Concomitant]
     Route: 048
     Dates: end: 20120719
  10. ALLELOCK [Concomitant]
     Route: 048
     Dates: end: 20120719
  11. BIO-THREE [Concomitant]
     Route: 048
     Dates: end: 20120719
  12. FUROSEMIDE [Concomitant]
     Route: 048
     Dates: end: 20120719
  13. THYRADIN S [Concomitant]
     Route: 048
     Dates: end: 20120719
  14. LENDORMIN [Concomitant]
     Route: 048
     Dates: end: 20120719
  15. LOXONIN [Concomitant]
     Route: 048
     Dates: end: 20120719
  16. LOPEMIN                            /00384302/ [Concomitant]
     Dosage: UNK
     Dates: end: 20130719

REACTIONS (4)
  - Liver disorder [Fatal]
  - Cerebral haemorrhage [Fatal]
  - Immune thrombocytopenic purpura [Fatal]
  - Anaemia [Fatal]
